FAERS Safety Report 14818869 (Version 1)
Quarter: 2018Q2

REPORT INFORMATION
  Report Type: Spontaneous
  Country: EE (occurrence: EE)
  Receive Date: 20180427
  Receipt Date: 20180427
  Transmission Date: 20180711
  Serious: Yes (Hospitalization)
  Sender: FDA-Public Use
  Company Number: EE-TEVA-2018-EE-886605

PATIENT
  Age: 24 Year
  Sex: Female
  Weight: 60 kg

DRUGS (2)
  1. AMOXICILLIN RATIOPHARM 500 MG, TABLETS WITH THIN POLYMER COATING [Suspect]
     Active Substance: AMOXICILLIN
     Indication: BRONCHITIS
     Route: 048
     Dates: start: 20180122, end: 20180128
  2. CIRRUS 5 MG/120 MG TABLETS FOR PROLONGING TREATMENT OF THE ACTIVE SUBS [Concomitant]
     Active Substance: CETIRIZINE HYDROCHLORIDE\PSEUDOEPHEDRINE HYDROCHLORIDE
     Indication: EAR DISORDER
     Route: 048
     Dates: start: 20180131, end: 20180206

REACTIONS (3)
  - Haemorrhage [Not Recovered/Not Resolved]
  - Thrombocytopenia [Not Recovered/Not Resolved]
  - Petechiae [Not Recovered/Not Resolved]

NARRATIVE: CASE EVENT DATE: 20180131
